FAERS Safety Report 6613312-8 (Version None)
Quarter: 2010Q1

REPORT INFORMATION
  Report Type: 
  Country: None (occurrence: None)
  Receive Date: 20100304
  Receipt Date: 20100222
  Transmission Date: 20100710
  Serious: Yes (Other)
  Sender: FDA-Public Use
  Company Number: PHHY2010US10530

PATIENT
  Sex: Male
  Weight: 80 kg

DRUGS (8)
  1. EXJADE [Suspect]
     Indication: HODGKIN'S DISEASE
     Dosage: 1500 MG DAILY
     Route: 048
     Dates: start: 20090611, end: 20100212
  2. ATENOLOL [Concomitant]
  3. AMARYL [Concomitant]
  4. VALTREX [Concomitant]
  5. GLUMETZA [Concomitant]
  6. ZANTAC [Concomitant]
  7. POTASSIUM [Concomitant]
  8. DYAZIDE [Concomitant]

REACTIONS (2)
  - ABDOMINAL DISCOMFORT [None]
  - ULCER [None]
